FAERS Safety Report 10159931 (Version 2)
Quarter: 2015Q1

REPORT INFORMATION
  Report Type: Spontaneous
  Country: US (occurrence: US)
  Receive Date: 20140508
  Receipt Date: 20150210
  Transmission Date: 20150720
  Serious: No
  Sender: FDA-Public Use
  Company Number: US-GLAXOSMITHKLINE-A1042302A

PATIENT

DRUGS (8)
  1. L-CARNITINE [Concomitant]
     Active Substance: CARNITINE
  2. ALOE VERA [Concomitant]
     Active Substance: ALOE VERA LEAF
  3. SUDAFED [Concomitant]
     Active Substance: PSEUDOEPHEDRINE HYDROCHLORIDE
  4. TYKERB [Suspect]
     Active Substance: LAPATINIB DITOSYLATE
     Indication: BREAST CANCER
     Dosage: 250 MG TABLET AT 1250 MG DAILY
     Route: 048
     Dates: start: 20100525
  5. HERCEPTIN [Suspect]
     Active Substance: TRASTUZUMAB
     Indication: PRODUCT USED FOR UNKNOWN INDICATION
     Route: 065
  6. ZOMETA [Suspect]
     Active Substance: ZOLEDRONIC ACID
     Indication: PRODUCT USED FOR UNKNOWN INDICATION
     Dosage: UNKNOWN STRENGTH AND DOSING
     Route: 065
  7. BENADRYL [Concomitant]
     Active Substance: DIPHENHYDRAMINE HYDROCHLORIDE
  8. TAXOL [Suspect]
     Active Substance: PACLITAXEL
     Indication: PRODUCT USED FOR UNKNOWN INDICATION
     Dosage: UNKNOWN STRENGTH AND DOSING
     Route: 065

REACTIONS (9)
  - Dyspnoea [Not Recovered/Not Resolved]
  - Anxiety [Unknown]
  - Ejection fraction abnormal [Unknown]
  - Chest pain [Not Recovered/Not Resolved]
  - Diarrhoea [Not Recovered/Not Resolved]
  - Hyperventilation [Unknown]
  - Blood test abnormal [Unknown]
  - Ejection fraction decreased [Unknown]
  - Tooth extraction [Unknown]

NARRATIVE: CASE EVENT DATE: 2010
